FAERS Safety Report 12594187 (Version 4)
Quarter: 2016Q3

REPORT INFORMATION
  Report Type: Report from Study
  Country: US (occurrence: US)
  Receive Date: 20160726
  Receipt Date: 20160909
  Transmission Date: 20161109
  Serious: Yes (Hospitalization, Other)
  Sender: FDA-Public Use
  Company Number: US-BAYER-2016-065258

PATIENT
  Age: 79 Year
  Sex: Female
  Weight: 116 kg

DRUGS (31)
  1. ADEMPAS [Suspect]
     Active Substance: RIOCIGUAT
     Indication: PULMONARY ARTERIAL HYPERTENSION
     Dosage: 1.5 MG, TID
     Route: 048
  2. SYNTHROID [Concomitant]
     Active Substance: LEVOTHYROXINE SODIUM
  3. CYTOMEL [Concomitant]
     Active Substance: LIOTHYRONINE SODIUM
  4. ADALAT CC [Concomitant]
     Active Substance: NIFEDIPINE
  5. FLONASE [Concomitant]
     Active Substance: FLUTICASONE PROPIONATE
  6. ANTIVERT [Concomitant]
     Active Substance: MECLIZINE HYDROCHLORIDE
  7. KLOR-CON [Concomitant]
     Active Substance: POTASSIUM CHLORIDE
  8. WELLBUTRIN XL [Concomitant]
     Active Substance: BUPROPION HYDROCHLORIDE
  9. VITAMIN D3 [Concomitant]
     Active Substance: CHOLECALCIFEROL
  10. PROTONIX [Concomitant]
     Active Substance: PANTOPRAZOLE SODIUM
  11. ADEMPAS [Suspect]
     Active Substance: RIOCIGUAT
     Indication: PULMONARY ARTERIAL HYPERTENSION
     Dosage: UNK
     Route: 048
     Dates: start: 20160318
  12. ADEMPAS [Suspect]
     Active Substance: RIOCIGUAT
     Indication: PULMONARY ARTERIAL HYPERTENSION
     Dosage: 1 MG, TID
     Route: 048
  13. ADEMPAS [Suspect]
     Active Substance: RIOCIGUAT
     Indication: PULMONARY ARTERIAL HYPERTENSION
     Dosage: 2.5 MG, TID
     Route: 048
  14. ADEMPAS [Suspect]
     Active Substance: RIOCIGUAT
     Indication: PULMONARY ARTERIAL HYPERTENSION
     Dosage: 2.5 MG, TID, LAST SHIPPED ON 21-JUL-2016
     Route: 048
  15. PREDNISONE. [Suspect]
     Active Substance: PREDNISONE
  16. DEXLANSOPRAZOLE [Concomitant]
     Active Substance: DEXLANSOPRAZOLE
  17. LASIX [Concomitant]
     Active Substance: FUROSEMIDE
  18. NEURONTIN [Concomitant]
     Active Substance: GABAPENTIN
  19. NORCO [Concomitant]
     Active Substance: ACETAMINOPHEN\HYDROCODONE BITARTRATE
  20. URSO [Concomitant]
     Active Substance: URSODIOL
  21. ADEMPAS [Suspect]
     Active Substance: RIOCIGUAT
     Indication: PULMONARY ARTERIAL HYPERTENSION
     Dosage: 0.5 MG, TID
     Route: 048
  22. ADEMPAS [Suspect]
     Active Substance: RIOCIGUAT
     Indication: PULMONARY ARTERIAL HYPERTENSION
     Dosage: 2 MG, TID
     Route: 048
  23. TRACLEER [Concomitant]
     Active Substance: BOSENTAN
     Dosage: UNK
  24. SILDENAFIL. [Concomitant]
     Active Substance: SILDENAFIL
     Dosage: (HISTORICAL DRUG)
  25. BUMEX [Concomitant]
     Active Substance: BUMETANIDE
     Dosage: 1 MG, QD
  26. PRAVACHOL [Concomitant]
     Active Substance: PRAVASTATIN SODIUM
  27. ZANTAC [Concomitant]
     Active Substance: RANITIDINE HYDROCHLORIDE
  28. ASPIRIN. [Concomitant]
     Active Substance: ASPIRIN
  29. MAG-OX [Concomitant]
     Active Substance: MAGNESIUM OXIDE
  30. METAMUCIL [Concomitant]
     Active Substance: PLANTAGO SEED
  31. ALDACTONE [Concomitant]
     Active Substance: SPIRONOLACTONE

REACTIONS (26)
  - Arthritis infective [None]
  - Procedural pain [Unknown]
  - Squamous cell carcinoma of skin [None]
  - Nausea [Unknown]
  - Alopecia [None]
  - Weight decreased [None]
  - Dizziness [None]
  - Malaise [Unknown]
  - Weight increased [None]
  - Dyspnoea [Not Recovered/Not Resolved]
  - Weight increased [Unknown]
  - Pneumonia [Unknown]
  - Fluid overload [None]
  - Local swelling [Unknown]
  - Gastrooesophageal reflux disease [None]
  - Dyspnoea exertional [None]
  - Oedema peripheral [None]
  - Furuncle [None]
  - Dyspnoea [None]
  - Postoperative wound infection [Unknown]
  - Generalised oedema [Not Recovered/Not Resolved]
  - Nasopharyngitis [Unknown]
  - Oedema [Unknown]
  - Cardiac failure congestive [Recovered/Resolved]
  - Gout [None]
  - Dyspepsia [None]

NARRATIVE: CASE EVENT DATE: 201603
